FAERS Safety Report 15195801 (Version 2)
Quarter: 2018Q4

REPORT INFORMATION
  Report Type: Report from Study
  Country: JP (occurrence: JP)
  Receive Date: 20180725
  Receipt Date: 20181017
  Transmission Date: 20190204
  Serious: Yes (Death, Hospitalization, Other)
  Sender: FDA-Public Use
  Company Number: JP-009507513-1807JPN002538J

PATIENT
  Age: 76 Year
  Sex: Male
  Weight: 49 kg

DRUGS (3)
  1. KEYTRUDA [Suspect]
     Active Substance: PEMBROLIZUMAB
     Indication: TRANSITIONAL CELL CARCINOMA
     Dosage: 200 MG, Q3W
     Route: 041
     Dates: start: 20180122, end: 20180226
  2. TOVIAZ [Concomitant]
     Active Substance: FESOTERODINE FUMARATE
     Dosage: 4 MG, QD
     Route: 048
     Dates: end: 201804
  3. NAFTOPIDIL [Concomitant]
     Active Substance: NAFTOPIDIL
     Dosage: 75 MG, QD
     Route: 048
     Dates: end: 201803

REACTIONS (2)
  - Hypoxia [Recovering/Resolving]
  - Malignant neoplasm progression [Fatal]

NARRATIVE: CASE EVENT DATE: 20180219
